FAERS Safety Report 8310630-2 (Version None)
Quarter: 2012Q2

REPORT INFORMATION
  Report Type: 
  Country: None (occurrence: None)
  Receive Date: 20120425
  Receipt Date: 20120425
  Transmission Date: 20120825
  Serious: Yes (Other)
  Sender: FDA-Public Use
  Company Number: None

PATIENT
  Age: 55 Year
  Sex: Female
  Weight: 81.646 kg

DRUGS (2)
  1. CIPROFLOXACIN HCL [Suspect]
     Indication: INFECTION
     Dates: start: 20120414, end: 20120415
  2. CIPROFLOXACIN HCL [Suspect]
     Indication: INFECTION

REACTIONS (1)
  - TENDONITIS [None]
